FAERS Safety Report 10581919 (Version 2)
Quarter: 2015Q2

REPORT INFORMATION
  Report Type: Spontaneous
  Country: US (occurrence: US)
  Receive Date: 20141113
  Receipt Date: 20150501
  Transmission Date: 20150821
  Serious: No
  Sender: FDA-Public Use
  Company Number: US-PFIZER INC-2014311057

PATIENT
  Age: 42 Year
  Sex: Female
  Weight: 57 kg

DRUGS (6)
  1. VICODIN [Concomitant]
     Active Substance: ACETAMINOPHEN\HYDROCODONE BITARTRATE
     Indication: PAIN
     Dosage: (HYDROCODONE BITARTRATE 7, PARACETAMOL 750) 3-4 TIMES A WEEK AS NEEDED
     Route: 048
  2. VITAMIN D [Concomitant]
     Active Substance: CHOLECALCIFEROL
     Indication: SUPPLEMENTATION THERAPY
     Dosage: 2000 IU, 1X/DAY
     Route: 048
  3. MAGNESIUM [Concomitant]
     Active Substance: MAGNESIUM
     Indication: SUPPLEMENTATION THERAPY
     Dosage: 250 MG, 1X/DAY
     Route: 048
  4. BIOTIN [Concomitant]
     Active Substance: BIOTIN
     Indication: SUPPLEMENTATION THERAPY
     Dosage: 10000 IU, 1X/DAY
     Route: 048
  5. XELJANZ [Suspect]
     Active Substance: TOFACITINIB CITRATE
     Indication: RHEUMATOID ARTHRITIS
     Dosage: UNK, WEEKLY (1 SHOT)
     Dates: start: 20131011, end: 201401
  6. NABUMETONE. [Concomitant]
     Active Substance: NABUMETONE
     Indication: INFLAMMATION
     Dosage: UNK UNK, 1X/DAY
     Route: 048

REACTIONS (5)
  - Paraesthesia [Recovered/Resolved]
  - Incorrect route of drug administration [Recovered/Resolved]
  - Pain [Not Recovered/Not Resolved]
  - Condition aggravated [Recovered/Resolved]
  - Pain in extremity [Not Recovered/Not Resolved]

NARRATIVE: CASE EVENT DATE: 201311
